FAERS Safety Report 25530077 (Version 1)
Quarter: 2025Q3

REPORT INFORMATION
  Report Type: Spontaneous
  Country: EU (occurrence: EU)
  Receive Date: 20250708
  Receipt Date: 20250708
  Transmission Date: 20251020
  Serious: Yes (Other)
  Sender: INCYTE
  Company Number: EU-002147023-NVSC2025BG104828

PATIENT
  Age: 61 Year

DRUGS (1)
  1. RUXOLITINIB [Suspect]
     Active Substance: RUXOLITINIB
     Indication: Myelofibrosis
     Dosage: 20 MG, BID

REACTIONS (7)
  - Blood lactate dehydrogenase increased [Recovering/Resolving]
  - Beta 2 microglobulin increased [Unknown]
  - Red blood cell count decreased [Unknown]
  - Haematocrit decreased [Recovering/Resolving]
  - Haemoglobin decreased [Recovering/Resolving]
  - Leukopenia [Unknown]
  - Thrombocytopenia [Recovering/Resolving]
